FAERS Safety Report 13296159 (Version 1)
Quarter: 2017Q1

REPORT INFORMATION
  Report Type: Spontaneous
  Country: US (occurrence: US)
  Receive Date: 20170304
  Receipt Date: 20170304
  Transmission Date: 20170428
  Serious: Yes (Other)
  Sender: FDA-Public Use
  Company Number: US-AUROBINDO-AUR-APU-2017-00282

PATIENT
  Sex: Female

DRUGS (1)
  1. VENLAFAXINE HYDROCHLORIDE EXTENDED-RELEASE CAPSULES 150MG [Suspect]
     Active Substance: VENLAFAXINE HYDROCHLORIDE
     Indication: PRODUCT USED FOR UNKNOWN INDICATION
     Route: 065

REACTIONS (6)
  - Depression [Recovering/Resolving]
  - Suicidal ideation [Recovering/Resolving]
  - Panic attack [Recovering/Resolving]
  - Dizziness [Recovering/Resolving]
  - Paraesthesia [Recovering/Resolving]
  - Product substitution issue [Recovering/Resolving]
